FAERS Safety Report 24992298 (Version 1)
Quarter: 2025Q1

REPORT INFORMATION
  Report Type: Report from Study
  Country: US (occurrence: US)
  Receive Date: 20250220
  Receipt Date: 20250220
  Transmission Date: 20250409
  Serious: Yes (Other)
  Sender: ALEXION PHARMACEUTICALS
  Company Number: 202412USA020627US

PATIENT

DRUGS (1)
  1. OLAPARIB [Suspect]
     Active Substance: OLAPARIB
     Indication: Breast cancer metastatic
     Dosage: 300 MILLIGRAM, BID

REACTIONS (7)
  - Nausea [Recovered/Resolved]
  - Insomnia [Recovering/Resolving]
  - Headache [Recovering/Resolving]
  - Taste disorder [Unknown]
  - Dysgeusia [Unknown]
  - Haematemesis [Unknown]
  - Haemoglobin decreased [Unknown]
